FAERS Safety Report 8923949 (Version 1)
Quarter: 2012Q4

REPORT INFORMATION
  Report Type: Report from Study
  Country: FR (occurrence: FR)
  Receive Date: 20121126
  Receipt Date: 20121126
  Transmission Date: 20130627
  Serious: Yes (Hospitalization, Other)
  Sender: FDA-Public Use
  Company Number: FR-009507513-1006FRA00060

PATIENT
  Age: 61 Year
  Sex: Male
  Weight: 98 kg

DRUGS (5)
  1. SITAGLIPTIN PHOSPHATE (+) METFORMIN HYDROCHLORIDE [Suspect]
     Indication: TYPE 2 DIABETES MELLITUS
     Dosage: 1000mg-50 mg, bid
     Route: 048
     Dates: start: 20090911, end: 20101102
  2. AMAREL [Suspect]
     Indication: TYPE 2 DIABETES MELLITUS
     Dosage: 2 mg, bid
     Route: 048
     Dates: start: 20100315, end: 20100415
  3. COTAREG [Concomitant]
     Indication: HYPERTENSION
     Dosage: 160 mg-12.5
     Route: 048
     Dates: start: 20051124, end: 20100827
  4. CRESTOR [Concomitant]
     Indication: DYSLIPIDAEMIA
     Dosage: 5 mg, qd
     Route: 048
     Dates: start: 20070406, end: 20100827
  5. JANUVIA [Concomitant]
     Indication: TYPE 2 DIABETES MELLITUS
     Dosage: 100 mg, qd
     Route: 048
     Dates: start: 20110218

REACTIONS (3)
  - Gastric cancer [Not Recovered/Not Resolved]
  - Abdominal pain upper [Recovered/Resolved]
  - Metastasis [Not Recovered/Not Resolved]
